FAERS Safety Report 16162412 (Version 1)
Quarter: 2019Q2

REPORT INFORMATION
  Report Type: Spontaneous
  Country: US (occurrence: US)
  Receive Date: 20190404
  Receipt Date: 20190404
  Transmission Date: 20190711
  Serious: Yes (Hospitalization)
  Sender: FDA-Public Use
  Company Number: None

PATIENT
  Age: 75 Year
  Sex: Male

DRUGS (3)
  1. CARVEDILOL TABLET [Suspect]
     Active Substance: CARVEDILOL
     Indication: HYPERTENSION
     Dates: start: 20190328, end: 20190403
  2. CHLORTHALIDONE 25MG [Concomitant]
     Active Substance: CHLORTHALIDONE
  3. SIMVASTATIN 10MG [Concomitant]
     Active Substance: SIMVASTATIN

REACTIONS (4)
  - Nausea [None]
  - Vomiting [None]
  - Blood pressure abnormal [None]
  - Dizziness [None]

NARRATIVE: CASE EVENT DATE: 20190329
